FAERS Safety Report 4577141-1 (Version None)
Quarter: 2005Q1

REPORT INFORMATION
  Report Type: 
  Country: None (occurrence: None)
  Receive Date: 20050208
  Receipt Date: 20050126
  Transmission Date: 20050727
  Serious: Yes (Disabling)
  Sender: FDA-Public Use
  Company Number: 2003041194

PATIENT
  Age: 47 Year
  Sex: Female

DRUGS (8)
  1. LIPITOR [Suspect]
     Indication: BLOOD CHOLESTEROL
     Dosage: 20 MG (1 IN 1 D)
     Dates: start: 20000401, end: 20010101
  2. WELCHOL [Suspect]
     Indication: BLOOD CHOLESTEROL
     Dosage: 20 MG (2 IN 1 D)
     Dates: start: 20010215
  3. CALCIUM (CALCIUM) [Concomitant]
  4. IBUPROFEN [Concomitant]
  5. FERROUS SULFATE 9FERROUS SULFATE) [Concomitant]
  6. PROTEIN SUPPLEMENTS (PROTEIN SUPPLEMENTS) [Concomitant]
  7. ACETYLSALICYLIC ACID SRT [Concomitant]
  8. SIMVASTATIN [Concomitant]

REACTIONS (36)
  - ALANINE AMINOTRANSFERASE DECREASED [None]
  - ANISOCYTOSIS [None]
  - BACK PAIN [None]
  - BLOOD CHLORIDE INCREASED [None]
  - BLOOD CHOLESTEROL INCREASED [None]
  - BLOOD TRIGLYCERIDES DECREASED [None]
  - BLOOD UREA DECREASED [None]
  - CHEST PAIN [None]
  - DRUG INTOLERANCE [None]
  - DYSPEPSIA [None]
  - ELECTROCARDIOGRAM ST SEGMENT ABNORMAL [None]
  - HAEMATOCRIT DECREASED [None]
  - HAEMOGLOBIN DECREASED [None]
  - HYPOCHROMASIA [None]
  - INSOMNIA [None]
  - LOSS OF EMPLOYMENT [None]
  - LOW DENSITY LIPOPROTEIN INCREASED [None]
  - MEAN CELL HAEMOGLOBIN DECREASED [None]
  - MEAN CELL VOLUME ABNORMAL [None]
  - MICROCYTOSIS [None]
  - MUSCULOSKELETAL PAIN [None]
  - MYOPATHY [None]
  - MYOSITIS [None]
  - NEPHROLITHIASIS [None]
  - OLIGOMENORRHOEA [None]
  - OSTEOPENIA [None]
  - PCO2 DECREASED [None]
  - PHOTOSENSITIVITY REACTION [None]
  - POLLAKIURIA [None]
  - PYREXIA [None]
  - RASH [None]
  - RED BLOOD CELL TARGET CELLS PRESENT [None]
  - RED CELL DISTRIBUTION WIDTH INCREASED [None]
  - SPINAL OSTEOARTHRITIS [None]
  - TOOTH DISORDER [None]
  - TREATMENT NONCOMPLIANCE [None]
